FAERS Safety Report 7445193-7 (Version None)
Quarter: 2011Q2

REPORT INFORMATION
  Report Type: 
  Country: None (occurrence: None)
  Receive Date: 20110427
  Receipt Date: 20110427
  Transmission Date: 20111010
  Serious: No
  Sender: FDA-Public Use
  Company Number: None

PATIENT
  Age: 51 Year
  Sex: Male
  Weight: 98 kg

DRUGS (1)
  1. XENAZINE [Suspect]
     Indication: HUNTINGTON'S DISEASE
     Dosage: 12.5 MG EVERY DAY PO
     Route: 048
     Dates: start: 20110328, end: 20110411

REACTIONS (3)
  - MENTAL STATUS CHANGES [None]
  - INSOMNIA [None]
  - TACHYPHRENIA [None]
